FAERS Safety Report 26057639 (Version 1)
Quarter: 2025Q4

REPORT INFORMATION
  Report Type: Spontaneous
  Country: GB (occurrence: GB)
  Receive Date: 20251118
  Receipt Date: 20251118
  Transmission Date: 20260118
  Serious: Yes (Other)
  Sender: AUROBINDO
  Company Number: GB-MHRA-MED-202511041506373260-YHMPF

PATIENT
  Age: 39 Year
  Weight: 100 kg

DRUGS (1)
  1. RIVAROXABAN [Suspect]
     Active Substance: RIVAROXABAN
     Indication: Deep vein thrombosis
     Dosage: 20 MILLIGRAM, TWO TIMES A DAY
     Route: 065
     Dates: start: 20251019, end: 20251020

REACTIONS (1)
  - Renal pain [Recovering/Resolving]

NARRATIVE: CASE EVENT DATE: 20251021
